FAERS Safety Report 13518729 (Version 1)
Quarter: 2017Q2

REPORT INFORMATION
  Report Type: Report from Study
  Country: None (occurrence: BR)
  Receive Date: 20170505
  Receipt Date: 20170505
  Transmission Date: 20170830
  Serious: Yes (Other)
  Sender: FDA-Public Use
  Company Number: BR-ABBVIE-17P-020-1965855-00

PATIENT
  Sex: Male
  Weight: 87 kg

DRUGS (2)
  1. SYNTHROID [Suspect]
     Active Substance: LEVOTHYROXINE SODIUM
     Dosage: MORNING (FASTING)
     Route: 048
     Dates: start: 2012
  2. SYNTHROID [Suspect]
     Active Substance: LEVOTHYROXINE SODIUM
     Indication: THYROIDECTOMY
     Dosage: MORNING (FASTING)
     Route: 048
     Dates: start: 2012

REACTIONS (1)
  - Diabetes mellitus [Unknown]
